FAERS Safety Report 16882066 (Version 2)
Quarter: 2019Q4

REPORT INFORMATION
  Report Type: Other
  Country: US (occurrence: US)
  Receive Date: 20191003
  Receipt Date: 20191004
  Transmission Date: 20200122
  Serious: Yes (Hospitalization, Other)
  Sender: FDA-Public Use
  Company Number: US-RARE DISEASE THERAPEUTICS, INC.-2075267

PATIENT
  Age: 49 Year
  Sex: Female

DRUGS (2)
  1. PURIXAN [Suspect]
     Active Substance: MERCAPTOPURINE
     Indication: COLITIS ULCERATIVE
  2. BUDESONIDE. [Suspect]
     Active Substance: BUDESONIDE

REACTIONS (2)
  - Off label use [None]
  - Atypical haemolytic uraemic syndrome [Recovered/Resolved]
